FAERS Safety Report 17694626 (Version 1)
Quarter: 2020Q2

REPORT INFORMATION
  Report Type: Report from Study
  Country: CA (occurrence: CA)
  Receive Date: 20200422
  Receipt Date: 20200422
  Transmission Date: 20200714
  Serious: Yes (Other)
  Sender: FDA-Public Use
  Company Number: CA-JNJFOC-20200423337

PATIENT
  Age: 44 Year
  Sex: Female
  Weight: 108.86 kg

DRUGS (1)
  1. SIMPONI [Suspect]
     Active Substance: GOLIMUMAB
     Indication: RHEUMATOID ARTHRITIS
     Dosage: STRENGTH = 50 MG
     Route: 058
     Dates: start: 20160616

REACTIONS (1)
  - Periumbilical abscess [Not Recovered/Not Resolved]

NARRATIVE: CASE EVENT DATE: 20200417
